FAERS Safety Report 7535281-9 (Version None)
Quarter: 2011Q2

REPORT INFORMATION
  Report Type: 
  Country: None (occurrence: None)
  Receive Date: 20110609
  Receipt Date: 20080208
  Transmission Date: 20111010
  Serious: Yes (Other)
  Sender: FDA-Public Use
  Company Number: PHHY2008JP01579

PATIENT
  Sex: Female

DRUGS (4)
  1. LOCHOLEST [Suspect]
     Indication: HYPERCHOLESTEROLAEMIA
     Dosage: 20 MG, QD
     Route: 048
     Dates: start: 20000619, end: 20020909
  2. SPIRONOLACTONE [Concomitant]
     Dosage: 25 MG, UNK
     Route: 048
     Dates: start: 20010105, end: 20020521
  3. NIVADIL [Concomitant]
     Dosage: 2 MG, UNK
     Route: 048
     Dates: start: 20000109
  4. CONIEL [Concomitant]
     Indication: HYPERTENSION
     Dosage: 4 MG, UNK
     Route: 048
     Dates: start: 20020521, end: 20020909

REACTIONS (2)
  - DEHYDRATION [None]
  - DECUBITUS ULCER [None]
